FAERS Safety Report 4778792-1 (Version None)
Quarter: 2005Q3

REPORT INFORMATION
  Report Type: 
  Country: None (occurrence: None)
  Receive Date: 20050923
  Receipt Date: 20050914
  Transmission Date: 20060218
  Serious: Yes (Hospitalization)
  Sender: FDA-Public Use
  Company Number: 2005-06-1590

PATIENT
  Age: 48 Year
  Sex: Male
  Weight: 67 kg

DRUGS (11)
  1. PEG-INTRON [Suspect]
     Indication: HEPATITIS C
     Dosage: 100 MCG QW SUBCUTANEOUS
     Route: 058
     Dates: start: 20050201, end: 20050420
  2. REBETOL [Suspect]
     Indication: HEPATITIS C
     Dosage: SEE IMAGE
     Route: 048
     Dates: start: 20050201, end: 20050314
  3. REBETOL [Suspect]
     Indication: HEPATITIS C
     Dosage: SEE IMAGE
     Route: 048
     Dates: start: 20050315, end: 20050321
  4. REBETOL [Suspect]
     Indication: HEPATITIS C
     Dosage: SEE IMAGE
     Route: 048
     Dates: start: 20050201, end: 20050426
  5. REBETOL [Suspect]
     Indication: HEPATITIS C
     Dosage: SEE IMAGE
     Route: 048
     Dates: start: 20050420, end: 20050426
  6. URSO TABLETS [Concomitant]
  7. LASIX TABLETS 40 MG [Concomitant]
  8. RYTHMODAN TABLETS [Concomitant]
  9. DIGOXIN [Concomitant]
  10. ADALAT [Concomitant]
  11. ISOSORBIDE MONOITRATE [Concomitant]

REACTIONS (1)
  - ERYTHEMA NODOSUM [None]
